FAERS Safety Report 25336770 (Version 1)
Quarter: 2025Q2

REPORT INFORMATION
  Report Type: Spontaneous
  Country: GH (occurrence: GH)
  Receive Date: 20250520
  Receipt Date: 20250520
  Transmission Date: 20250717
  Serious: Yes (Death)
  Sender: MEDICINES DEVELOPMENT FOR GLOBAL HEALTH
  Company Number: GH-MEDICINES DEVELOPMENT-GH-MED-25-00058

PATIENT
  Age: 50 Year
  Sex: Female

DRUGS (1)
  1. MOXIDECTIN [Suspect]
     Active Substance: MOXIDECTIN
     Indication: Onchocerciasis
     Route: 048
     Dates: start: 20250129

REACTIONS (3)
  - Hepatic encephalopathy [Fatal]
  - Hepatitis fulminant [Fatal]
  - Biliary obstruction [Fatal]

NARRATIVE: CASE EVENT DATE: 20250212
